FAERS Safety Report 9893270 (Version 2)
Quarter: 2014Q2

REPORT INFORMATION
  Report Type: Report from Study
  Country: AU (occurrence: AU)
  Receive Date: 20140213
  Receipt Date: 20140417
  Transmission Date: 20141212
  Serious: Yes (Death)
  Sender: FDA-Public Use
  Company Number: AU-ROCHE-1348376

PATIENT
  Sex: Female

DRUGS (6)
  1. AVASTIN [Suspect]
     Indication: GLIOBLASTOMA
     Route: 065
     Dates: start: 20130717, end: 20130828
  2. DEXAMETHASONE [Concomitant]
     Indication: OEDEMA
  3. KEPPRA [Concomitant]
     Indication: CONVULSION
  4. PRISTIQ [Concomitant]
     Indication: DEPRESSION
  5. SOMAC [Concomitant]
  6. STILNOX [Concomitant]

REACTIONS (2)
  - Disease progression [Fatal]
  - Drug ineffective [Unknown]
